FAERS Safety Report 5000119-0 (Version None)
Quarter: 2006Q2

REPORT INFORMATION
  Report Type: 
  Country: None (occurrence: None)
  Receive Date: 20060509
  Receipt Date: 20060428
  Transmission Date: 20061013
  Serious: Yes (Other)
  Sender: FDA-Public Use
  Company Number: 2006003953

PATIENT
  Age: 26 Year
  Sex: Female

DRUGS (2)
  1. DEPO-PROVERA [Suspect]
     Indication: CONTRACEPTION
     Dosage: 150 MG (150 MG, FIRST INJECTION, EVERY 3 MONTHS MONTHS), INTRAMUSCULAR; SEE IMAGE
     Route: 030
     Dates: start: 20050601, end: 20050601
  2. DEPO-PROVERA [Suspect]
     Indication: CONTRACEPTION
     Dosage: 150 MG (150 MG, FIRST INJECTION, EVERY 3 MONTHS MONTHS), INTRAMUSCULAR; SEE IMAGE
     Route: 030
     Dates: start: 20050930, end: 20050930

REACTIONS (3)
  - BLOOD GLUCOSE DECREASED [None]
  - MENSTRUATION IRREGULAR [None]
  - NODULE [None]
